FAERS Safety Report 23515216 (Version 1)
Quarter: 2024Q1

REPORT INFORMATION
  Report Type: Spontaneous
  Country: FR (occurrence: FR)
  Receive Date: 20240213
  Receipt Date: 20240213
  Transmission Date: 20240410
  Serious: Yes (Hospitalization, Other)
  Sender: FDA-Public Use
  Company Number: None

PATIENT

DRUGS (2)
  1. ADVIL [Suspect]
     Active Substance: IBUPROFEN
     Indication: Product used for unknown indication
     Dosage: 1200 MG, QD (400 MG, TID)
     Dates: start: 20090404
  2. EXJADE [Suspect]
     Active Substance: DEFERASIROX
     Indication: Iron overload
     Dosage: 625 MG, QD
     Dates: start: 2007, end: 20090407

REACTIONS (11)
  - Anuria [Recovered/Resolved]
  - Fanconi syndrome acquired [Recovered/Resolved]
  - Renal tubular acidosis [Recovered/Resolved]
  - Acute kidney injury [Recovered/Resolved]
  - Abdominal pain [Recovered/Resolved]
  - Polyuria [Recovered/Resolved]
  - Diarrhoea [Recovered/Resolved]
  - Constipation [Recovered/Resolved]
  - Vomiting [Recovered/Resolved]
  - Blood creatinine increased [Recovered/Resolved]
  - Kidney enlargement [Recovered/Resolved]

NARRATIVE: CASE EVENT DATE: 20090405
